FAERS Safety Report 6599208-9 (Version None)
Quarter: 2010Q1

REPORT INFORMATION
  Report Type: 
  Country: None (occurrence: None)
  Receive Date: 20100224
  Receipt Date: 20100210
  Transmission Date: 20100710
  Serious: Yes (Hospitalization, Other)
  Sender: FDA-Public Use
  Company Number: PHHY2010DE08545

PATIENT
  Sex: Female
  Weight: 70 kg

DRUGS (10)
  1. CRANOC 80 RETARD [Suspect]
     Dosage: 80 MG PER DAY
     Route: 048
     Dates: start: 20051227
  2. NO TREATMENT RECEIVED NOMED [Suspect]
     Indication: HYPERTENSION
  3. BETA BLOCKING AGENTS [Concomitant]
  4. ACETYLSALICYLIC ACID [Concomitant]
     Indication: PROPHYLAXIS
     Dosage: 100 MG/DAY
     Route: 048
     Dates: start: 20060704
  5. BELOC ZOK [Concomitant]
     Indication: HYPERTENSION
     Dosage: 190 MG PER DAY
     Route: 048
     Dates: start: 20090415
  6. LEVOTHYROXINE SODIUM [Concomitant]
     Indication: HYPOTHYROIDISM
     Dosage: 0.005 MG PER DAY
     Route: 048
     Dates: start: 20070123
  7. EZETROL [Concomitant]
     Indication: HYPERLIPIDAEMIA
     Dosage: 10 MG PER DAY
     Route: 048
     Dates: start: 20051116
  8. KALIUM RETARD [Concomitant]
     Indication: HYPOKALAEMIA
     Dosage: 80 MG PER DAY
     Route: 048
     Dates: start: 20090415
  9. MAGNESIUM [Concomitant]
     Indication: ARRHYTHMIA
     Dosage: 540 MG PER DAY
     Route: 048
     Dates: start: 20090415
  10. MICARDIS [Concomitant]
     Indication: HYPERTENSION
     Dosage: 80 MG PER DAY
     Route: 048
     Dates: start: 20090127

REACTIONS (12)
  - ANGINA PECTORIS [None]
  - ATRIAL FIBRILLATION [None]
  - CARDIAC FAILURE [None]
  - CATHETERISATION CARDIAC [None]
  - CORONARY ARTERY DISEASE [None]
  - DYSPNOEA EXERTIONAL [None]
  - HAEMOGLOBIN DECREASED [None]
  - HEART RATE DECREASED [None]
  - HYPERTENSION [None]
  - HYPOKALAEMIA [None]
  - HYPOTHYROIDISM [None]
  - SICK SINUS SYNDROME [None]
